FAERS Safety Report 15516617 (Version 2)
Quarter: 2018Q4

REPORT INFORMATION
  Report Type: Report from Study
  Country: UY (occurrence: UY)
  Receive Date: 20181017
  Receipt Date: 20181122
  Transmission Date: 20190205
  Serious: No
  Sender: FDA-Public Use
  Company Number: UY-ROCHE-2117067

PATIENT
  Sex: Male

DRUGS (2)
  1. OCRELIZUMAB. [Suspect]
     Active Substance: OCRELIZUMAB
     Indication: PRIMARY PROGRESSIVE MULTIPLE SCLEROSIS
     Route: 042
     Dates: start: 20180328
  2. OCRELIZUMAB. [Suspect]
     Active Substance: OCRELIZUMAB
     Route: 042
     Dates: start: 20180414

REACTIONS (6)
  - Nasal pruritus [Recovered/Resolved]
  - Sneezing [Recovered/Resolved]
  - White blood cell count decreased [Recovered/Resolved]
  - Urinary tract infection [Recovered/Resolved]
  - Erythema [Recovered/Resolved]
  - Rhinorrhoea [Recovered/Resolved]
